FAERS Safety Report 7054169-3 (Version None)
Quarter: 2010Q4

REPORT INFORMATION
  Report Type: 
  Country: None (occurrence: None)
  Receive Date: 20101020
  Receipt Date: 20101014
  Transmission Date: 20110411
  Serious: Yes (Other)
  Sender: FDA-Public Use
  Company Number: CHPA2010DE16183

PATIENT
  Sex: Female
  Weight: 79 kg

DRUGS (9)
  1. OTRIVEN (NCH) [Suspect]
     Dosage: UNK, UNK
     Route: 045
  2. CARBAMAZEPIN ^GRY^ [Concomitant]
     Dosage: 2 X 1/2
     Route: 065
  3. ZYPREXA [Concomitant]
     Dosage: 1 DF, QD
     Route: 065
  4. DIAZEPAM [Concomitant]
     Dosage: 12 GTT, PRN
     Route: 065
  5. RASILEZ (ALISKIREN FUMARATE) [Concomitant]
     Dosage: 300 MG, QD
     Route: 065
  6. DELMUNO [Concomitant]
     Dosage: 2.5/2.5MG, 1X1
     Route: 065
  7. PRAVASTATIN [Concomitant]
     Dosage: 40 MG, QD
     Route: 065
  8. BERLTHYROX [Concomitant]
     Dosage: 50 UG, QD
     Route: 065
  9. TORASEMIDE [Concomitant]
     Dosage: 20 MG, QD
     Route: 065

REACTIONS (2)
  - BLISTER [None]
  - PRURITUS [None]
